FAERS Safety Report 6259714-3 (Version None)
Quarter: 2009Q3

REPORT INFORMATION
  Report Type: 
  Country: None (occurrence: None)
  Receive Date: 20090708
  Receipt Date: 20090630
  Transmission Date: 20100115
  Serious: Yes (Hospitalization)
  Sender: FDA-Public Use
  Company Number: CN-JNJFOC-20090700613

PATIENT
  Sex: Male
  Weight: 64.5 kg

DRUGS (4)
  1. REMICADE [Suspect]
     Dosage: PERMANENTLY
     Route: 042
  2. REMICADE [Suspect]
     Route: 042
  3. REMICADE [Suspect]
     Indication: ANKYLOSING SPONDYLITIS
     Route: 042
  4. MTX [Concomitant]
     Indication: ANKYLOSING SPONDYLITIS

REACTIONS (1)
  - TUBERCULOSIS [None]
